FAERS Safety Report 10038085 (Version 1)
Quarter: 2014Q1

REPORT INFORMATION
  Report Type: Spontaneous
  Country: US (occurrence: None)
  Receive Date: 20140306
  Receipt Date: 20140306
  Transmission Date: 20141002
  Serious: Yes (Other)
  Sender: FDA-Public Use
  Company Number: 163-21880-11070834

PATIENT
  Age: 79 Year
  Sex: Female

DRUGS (4)
  1. REVLIMID [Suspect]
     Indication: PLASMA CELL MYELOMA
     Route: 048
     Dates: start: 200702, end: 200809
  2. ZOMETA (ZOLEDRONIC ACID) [Concomitant]
  3. CALCIUM [Concomitant]
  4. VITAMIN D (ERGOCALCIFEROL) [Concomitant]

REACTIONS (4)
  - Angioedema [None]
  - Stomatitis [None]
  - Erythema [None]
  - Diarrhoea [None]
